FAERS Safety Report 21739251 (Version 3)
Quarter: 2023Q1

REPORT INFORMATION
  Report Type: Report from Study
  Country: US (occurrence: US)
  Receive Date: 20221216
  Receipt Date: 20230303
  Transmission Date: 20230417
  Serious: Yes (Hospitalization)
  Sender: FDA-Public Use
  Company Number: US-GBT-018455

PATIENT
  Age: 25 Year
  Sex: Female

DRUGS (2)
  1. OXBRYTA [Suspect]
     Active Substance: VOXELOTOR
     Indication: Pain
     Dosage: DATE OF LAST OXBRYTA? DOSE PRIOR TO EVENT ONSET WAS 30-APR-2020
     Dates: start: 20200302
  2. Albuterol HFA 90 mcg/actuation inhaler [Concomitant]
     Indication: Asthma
     Route: 055
     Dates: start: 20180614

REACTIONS (1)
  - Sickle cell anaemia with crisis [Recovered/Resolved]

NARRATIVE: CASE EVENT DATE: 20200501
